FAERS Safety Report 12094316 (Version 2)
Quarter: 2016Q1

REPORT INFORMATION
  Report Type: Spontaneous
  Country: FR (occurrence: FR)
  Receive Date: 20160219
  Receipt Date: 20160310
  Transmission Date: 20160526
  Serious: Yes (Other)
  Sender: FDA-Public Use
  Company Number: FR-SA-2015SA216846

PATIENT
  Age: 62 Year
  Sex: Female
  Weight: 85 kg

DRUGS (5)
  1. ENBREL [Concomitant]
     Active Substance: ETANERCEPT
     Indication: RHEUMATOID ARTHRITIS
     Dosage: 1 DF EVERY 13 DAYS
     Route: 058
     Dates: start: 200802
  2. COVERSYL [Concomitant]
     Active Substance: PERINDOPRIL
     Indication: HYPERTENSION
     Route: 048
     Dates: start: 20151101
  3. ARAVA [Suspect]
     Active Substance: LEFLUNOMIDE
     Indication: RHEUMATOID ARTHRITIS
     Dosage: 3 TIMES WEEKLY
     Route: 048
     Dates: start: 200802, end: 20151216
  4. STRESAM [Concomitant]
     Active Substance: ETIFOXINE
     Indication: ANXIETY
     Route: 048
     Dates: start: 20150909, end: 20151130
  5. STRESAM [Concomitant]
     Active Substance: ETIFOXINE
     Indication: EMOTIONAL DISORDER
     Route: 048
     Dates: start: 20150909, end: 20151130

REACTIONS (5)
  - Hepatic steatosis [Unknown]
  - Aspartate aminotransferase increased [Not Recovered/Not Resolved]
  - Hepatic enzyme increased [Not Recovered/Not Resolved]
  - Alanine aminotransferase increased [Not Recovered/Not Resolved]
  - Gamma-glutamyltransferase increased [Not Recovered/Not Resolved]

NARRATIVE: CASE EVENT DATE: 20151120
